FAERS Safety Report 24458843 (Version 1)
Quarter: 2024Q4

REPORT INFORMATION
  Report Type: Spontaneous
  Country: JP (occurrence: JP)
  Receive Date: 20241018
  Receipt Date: 20241018
  Transmission Date: 20250114
  Serious: No
  Sender: ROCHE
  Company Number: JP-ROCHE-3515698

PATIENT
  Age: 69 Year
  Sex: Female

DRUGS (7)
  1. RITUXIMAB [Suspect]
     Active Substance: RITUXIMAB
     Indication: Follicular lymphoma
     Route: 065
  2. TOCILIZUMAB [Suspect]
     Active Substance: TOCILIZUMAB
     Indication: COVID-19
     Route: 065
  3. REMDESIVIR [Concomitant]
     Active Substance: REMDESIVIR
  4. METHYLPREDNISOLONE [Concomitant]
     Active Substance: METHYLPREDNISOLONE
  5. BENDAMUSTINE [Concomitant]
     Active Substance: BENDAMUSTINE
  6. ATOVAQUONE [Concomitant]
     Active Substance: ATOVAQUONE
  7. TACROLIMUS [Concomitant]
     Active Substance: TACROLIMUS

REACTIONS (2)
  - COVID-19 [Unknown]
  - Off label use [Unknown]
